FAERS Safety Report 4460132-9 (Version None)
Quarter: 2004Q3

REPORT INFORMATION
  Report Type: 
  Country: None (occurrence: None)
  Receive Date: 20040928
  Receipt Date: 20031224
  Transmission Date: 20050211
  Serious: No
  Sender: FDA-Public Use
  Company Number: US-GLAXOSMITHKLINE-A0444155A

PATIENT
  Age: 63 Year
  Sex: Female

DRUGS (19)
  1. SEREVENT [Suspect]
     Dosage: 1PUFF TWICE PER DAY
     Route: 055
     Dates: start: 20031110
  2. IPATROPIUM BROMIDE [Concomitant]
     Route: 055
  3. ALBUTEROL [Concomitant]
  4. LASIX [Concomitant]
  5. CAPTOPRIL [Concomitant]
     Dosage: 50MG THREE TIMES PER DAY
  6. PROZAC [Concomitant]
  7. KLOR-CON [Concomitant]
  8. CARTIA XT [Concomitant]
  9. ASPIRIN [Concomitant]
  10. VITAMIN B6 [Concomitant]
  11. VITAMIN B-12 [Concomitant]
  12. VITAMIN E [Concomitant]
  13. VITAMIN C [Concomitant]
  14. OMEGA 3 [Concomitant]
  15. GLUCOSAMINE COMPLEX [Concomitant]
  16. CALCIUM [Concomitant]
  17. PRAVACHOL [Concomitant]
  18. VITAMIN K TAB [Concomitant]
  19. OXYGEN [Concomitant]
     Route: 055

REACTIONS (2)
  - DRUG INEFFECTIVE [None]
  - PULMONARY CONGESTION [None]
